FAERS Safety Report 24714519 (Version 2)
Quarter: 2025Q3

REPORT INFORMATION
  Report Type: Report from Study
  Country: ZA (occurrence: ZA)
  Receive Date: 20241209
  Receipt Date: 20250809
  Transmission Date: 20251020
  Serious: Yes (Other)
  Sender: ALEXION PHARMACEUTICALS
  Company Number: ZA-AstraZeneca-CH-00759960A

PATIENT
  Age: 67 Year
  Sex: Female

DRUGS (2)
  1. BUDESONIDE\FORMOTEROL [Suspect]
     Active Substance: BUDESONIDE\FORMOTEROL
     Indication: Asthma
  2. PREDATOR [Concomitant]
     Active Substance: LIDOCAINE HYDROCHLORIDE
     Indication: Hypertension

REACTIONS (1)
  - Multiple fractures [Unknown]
